FAERS Safety Report 20708359 (Version 1)
Quarter: 2022Q2

REPORT INFORMATION
  Report Type: Spontaneous
  Country: AU (occurrence: AU)
  Receive Date: 20220414
  Receipt Date: 20220414
  Transmission Date: 20220721
  Serious: Yes (Other)
  Sender: FDA-Public Use
  Company Number: AU-BoehringerIngelheim-2022-BI-164930

PATIENT
  Age: 6 Year
  Sex: Female
  Weight: 20 kg

DRUGS (1)
  1. CLONIDINE [Suspect]
     Active Substance: CLONIDINE
     Indication: Attention deficit hyperactivity disorder
     Dosage: IN THE MORNING AT 8 AM
     Route: 048

REACTIONS (4)
  - Accidental exposure to product by child [Unknown]
  - Coma scale abnormal [Unknown]
  - Heart rate variability increased [Unknown]
  - Somnolence [Unknown]

NARRATIVE: CASE EVENT DATE: 20210525
